FAERS Safety Report 6860442-1 (Version None)
Quarter: 2010Q3

REPORT INFORMATION
  Report Type: 
  Country: None (occurrence: None)
  Receive Date: 20100720
  Receipt Date: 20100715
  Transmission Date: 20110219
  Serious: Yes (Death, Life-Threatening, Disabling)
  Sender: FDA-Public Use
  Company Number: CN-ROCHE-713509

PATIENT
  Sex: Female
  Weight: 50 kg

DRUGS (3)
  1. CAPECITABINE [Suspect]
     Indication: GASTRIC CANCER
     Dosage: FREQUENCY:DAY1 TO DAY14, LAST DOSE:23JUNE2010, ROUTE:'BID PO', PERMANENTLY DISCONTINUED.
     Route: 048
     Dates: start: 20091030, end: 20100705
  2. BLINDED BEVACIZUMAB [Suspect]
     Indication: GASTRIC CANCER
     Dosage: FORM:INFUSION, DOSE BLINDED,EMERGENCY CODE BROKEN:YES,PERMANENTLY DISCONTINUED LAST DOSE: 09JUNE2010
     Route: 042
     Dates: start: 20091030, end: 20100705
  3. CISPLATIN [Suspect]
     Indication: GASTRIC CANCER
     Dosage: FREQUENCY:D1Q3W,LAST DOSE:26FEBRUARY2010, FORM: INFUSION
     Route: 042
     Dates: start: 20091030

REACTIONS (2)
  - CRANIAL NERVE DISORDER [None]
  - METASTASES TO MENINGES [None]
